FAERS Safety Report 21396666 (Version 1)
Quarter: 2022Q3

REPORT INFORMATION
  Report Type: Spontaneous
  Country: GB (occurrence: None)
  Receive Date: 20220930
  Receipt Date: 20220930
  Transmission Date: 20221027
  Serious: Yes (Other)
  Sender: FDA-Public Use
  Company Number: GB-ROCHE-3189035

PATIENT
  Age: 64 Year
  Sex: Male
  Weight: 145 kg

DRUGS (2)
  1. POLIVY [Suspect]
     Active Substance: POLATUZUMAB VEDOTIN-PIIQ
     Indication: Diffuse large B-cell lymphoma
     Route: 065
  2. RITUXIMAB [Suspect]
     Active Substance: RITUXIMAB
     Indication: Diffuse large B-cell lymphoma
     Dosage: 1/MAR/2022, 22/MAR/2022, 12/APR/2022, 3/MAR/2022, 4/JUN/2022  RECENT DOSE WAS ADMINISTERED
     Route: 065
     Dates: start: 20220208

REACTIONS (8)
  - Off label use [Unknown]
  - Abdominal pain upper [Unknown]
  - Hypertension [Unknown]
  - Night sweats [Unknown]
  - Arteriosclerosis coronary artery [Unknown]
  - Blood cholesterol increased [Unknown]
  - Glycosylated haemoglobin increased [Unknown]
  - Ejection fraction decreased [Unknown]
